FAERS Safety Report 5815415-4 (Version None)
Quarter: 2008Q3

REPORT INFORMATION
  Report Type: 
  Country: None (occurrence: None)
  Receive Date: 20080718
  Receipt Date: 20080709
  Transmission Date: 20090109
  Serious: Yes (Hospitalization)
  Sender: FDA-Public Use
  Company Number: US-ABBOTT-08P-163-0461682-00

PATIENT
  Sex: Female
  Weight: 70.37 kg

DRUGS (3)
  1. DEPAKOTE [Suspect]
     Indication: BIPOLAR DISORDER
  2. DEPAKOTE [Suspect]
     Indication: DEPRESSION
  3. QUETIAPINE FUMARATE [Concomitant]
     Indication: DEPRESSION
     Route: 048
     Dates: start: 20060101

REACTIONS (5)
  - CHEST PAIN [None]
  - INCISION SITE HAEMORRHAGE [None]
  - LIVER FUNCTION TEST ABNORMAL [None]
  - PULMONARY EMBOLISM [None]
  - THROMBOSIS [None]
